FAERS Safety Report 9439884 (Version 1)
Quarter: 2013Q3

REPORT INFORMATION
  Report Type: Spontaneous
  Country: US (occurrence: US)
  Receive Date: 20130805
  Receipt Date: 20130805
  Transmission Date: 20140515
  Serious: Yes (Hospitalization)
  Sender: FDA-Public Use
  Company Number: US-BAYER-2013-092279

PATIENT
  Age: 50 Year
  Sex: Female

DRUGS (6)
  1. YASMIN [Suspect]
  2. OCELLA [Suspect]
  3. LEVOTHYROXINE [Concomitant]
  4. BENZOYL PEROXIDE W/CLINDAMYCIN [Concomitant]
  5. VERAPAMIL [Concomitant]
  6. OXYCODONE [Concomitant]

REACTIONS (1)
  - Subarachnoid haemorrhage [None]
